FAERS Safety Report 5308465-8 (Version None)
Quarter: 2007Q2

REPORT INFORMATION
  Report Type: 
  Country: None (occurrence: None)
  Receive Date: 20070423
  Receipt Date: 20070417
  Transmission Date: 20071010
  Serious: Yes (Hospitalization)
  Sender: FDA-Public Use
  Company Number: SP01210

PATIENT
  Age: 62 Year
  Sex: Female
  Weight: 55.3388 kg

DRUGS (6)
  1. OSMOPREP [Suspect]
     Indication: COLONOSCOPY
     Dosage: 48 GM, ORAL
     Route: 048
     Dates: start: 20070412, end: 20070412
  2. MESALAZINE [Concomitant]
  3. LEVOTHYROXINE SODIUM [Concomitant]
  4. RALOXIFENE HCL [Concomitant]
  5. SULFASALAZINE [Concomitant]
  6. LANSOPRAZOLE [Concomitant]

REACTIONS (6)
  - ASTHENIA [None]
  - ELECTROLYTE IMBALANCE [None]
  - GENERAL PHYSICAL HEALTH DETERIORATION [None]
  - HYPOAESTHESIA [None]
  - NAUSEA [None]
  - VOMITING [None]
